FAERS Safety Report 10151990 (Version 2)
Quarter: 2014Q2

REPORT INFORMATION
  Report Type: Spontaneous
  Country: JP (occurrence: JP)
  Receive Date: 20140505
  Receipt Date: 20140505
  Transmission Date: 20141212
  Serious: Yes (Hospitalization, Other)
  Sender: FDA-Public Use
  Company Number: PHHY2012JP002479

PATIENT
  Age: 76 Year
  Sex: Female

DRUGS (5)
  1. GLIVEC [Suspect]
     Indication: GASTROINTESTINAL STROMAL TUMOUR
     Dosage: 400 MG, DAILY
     Route: 048
     Dates: start: 201111, end: 201201
  2. GLIVEC [Suspect]
     Dosage: 100 UNK, UNK
     Dates: start: 201201
  3. GLIVEC [Suspect]
     Dosage: 200 MG, UNK
  4. GLIVEC [Suspect]
     Dosage: 300 UNK, UNK
  5. GLIVEC [Suspect]
     Dosage: 400 MG, UNK

REACTIONS (4)
  - Abdominal neoplasm [Unknown]
  - Rash [Unknown]
  - Dermatitis [Recovering/Resolving]
  - Pruritus [Recovering/Resolving]
